FAERS Safety Report 9205839 (Version 1)
Quarter: 2013Q2

REPORT INFORMATION
  Report Type: Spontaneous
  Country: US (occurrence: US)
  Receive Date: 20130403
  Receipt Date: 20130403
  Transmission Date: 20140414
  Serious: No
  Sender: FDA-Public Use
  Company Number: US-BAYER-2013-040635

PATIENT
  Sex: Female
  Weight: 68.03 kg

DRUGS (7)
  1. BETASERON [Suspect]
     Dosage: 0.3 MG, QOD
     Route: 058
  2. NECON [Concomitant]
  3. CALCIUM [Concomitant]
     Dosage: 500 UNK, UNK
  4. MULTIVITAMIN [Concomitant]
  5. COLACE [Concomitant]
     Dosage: 100 MG, UNK
  6. SYNTHROID [Concomitant]
     Dosage: 100 ?G, UNK
  7. PROTONIX [Concomitant]
     Dosage: 20 MG, UNK
     Dates: start: 2011, end: 2013

REACTIONS (2)
  - Joint swelling [Unknown]
  - Rash [Unknown]
